FAERS Safety Report 7964848-9 (Version None)
Quarter: 2011Q4

REPORT INFORMATION
  Report Type: 
  Country: None (occurrence: None)
  Receive Date: 20111208
  Receipt Date: 20111129
  Transmission Date: 20120403
  Serious: Yes (Hospitalization)
  Sender: FDA-Public Use
  Company Number: PHHY2011EC104692

PATIENT
  Sex: Male

DRUGS (2)
  1. RASILEZ [Suspect]
     Indication: HYPERTENSION
     Dosage: 1 DF, DAILLY
     Route: 048
  2. ACETYLCYSTEINE [Concomitant]
     Indication: INCREASED UPPER AIRWAY SECRETION
     Dosage: 1 ENVELOPE DAILY DOSE

REACTIONS (4)
  - GASTRITIS [None]
  - PYREXIA [None]
  - VOMITING [None]
  - ABDOMINAL PAIN UPPER [None]
